FAERS Safety Report 4628527-8 (Version None)
Quarter: 2005Q2

REPORT INFORMATION
  Report Type: 
  Country: None (occurrence: None)
  Receive Date: 20050404
  Receipt Date: 20050322
  Transmission Date: 20051028
  Serious: Yes (Hospitalization)
  Sender: FDA-Public Use
  Company Number: SUSI-2005-00250

PATIENT
  Age: 60 Year
  Sex: Male

DRUGS (7)
  1. PENTASA [Suspect]
     Indication: CROHN'S DISEASE
     Dosage: 1000 MG, DAILY, ORAL
     Route: 048
  2. KARDEGIC (FRA/(ACETYLSALICYLATE LYSINE) [Suspect]
     Indication: CORONARY ARTERIAL STENT INSERTION
     Dosage: 75 MG, DAILY , ORAL
     Route: 048
     Dates: start: 20050205, end: 20050315
  3. PREDNISONE [Concomitant]
  4. OMEPRAZOLE [Concomitant]
  5. METOPROLOL TARTRATE [Concomitant]
  6. PLAVIX [Concomitant]
  7. SELOKEN (HYDROCHLROTHIAZIDE, METOPROLOL) [Concomitant]

REACTIONS (5)
  - BLEEDING TIME PROLONGED [None]
  - CONJUNCTIVAL HAEMORRHAGE [None]
  - DRUG INTERACTION [None]
  - EPISTAXIS [None]
  - SUBCUTANEOUS HAEMATOMA [None]
